FAERS Safety Report 8058179-9 (Version None)
Quarter: 2012Q1

REPORT INFORMATION
  Report Type: 
  Country: None (occurrence: None)
  Receive Date: 20120120
  Receipt Date: 20120106
  Transmission Date: 20120608
  Serious: Yes (Hospitalization, Other)
  Sender: FDA-Public Use
  Company Number: CA-JNJFOC-20120106933

PATIENT
  Age: 41 Year
  Sex: Male
  Weight: 93.5 kg

DRUGS (4)
  1. BENADRYL [Concomitant]
     Indication: PREMEDICATION
     Route: 048
     Dates: start: 20111219
  2. REMICADE [Suspect]
     Route: 042
     Dates: start: 20111219
  3. REMICADE [Suspect]
     Indication: PSORIATIC ARTHROPATHY
     Route: 042
  4. ACETAMINOPHEN [Concomitant]
     Indication: PREMEDICATION
     Route: 048
     Dates: start: 20111219

REACTIONS (6)
  - SYNCOPE [None]
  - WHEEZING [None]
  - VOMITING [None]
  - INFUSION RELATED REACTION [None]
  - HYPERHIDROSIS [None]
  - NAUSEA [None]
